FAERS Safety Report 6718142-4 (Version None)
Quarter: 2010Q2

REPORT INFORMATION
  Report Type: 
  Country: None (occurrence: None)
  Receive Date: 20100510
  Receipt Date: 20100429
  Transmission Date: 20101027
  Serious: Yes (Other)
  Sender: FDA-Public Use
  Company Number: B0650906A

PATIENT
  Age: 60 Year
  Sex: Female
  Weight: 95 kg

DRUGS (6)
  1. AVANDIA [Suspect]
     Dosage: 4MG TWICE PER DAY
     Route: 065
     Dates: start: 20040101, end: 20080201
  2. GEMFIBROZIL [Suspect]
     Dosage: 600MG TWICE PER DAY
     Route: 065
  3. METFORMIN HYDROCHLORIDE [Concomitant]
     Dosage: 1000MG PER DAY
     Route: 065
     Dates: start: 19970101
  4. ATENOLOL [Concomitant]
     Dosage: 50MG PER DAY
  5. BUPROPION HCL [Concomitant]
     Dosage: 150MG TWICE PER DAY
  6. TRIAZOLAM [Concomitant]
     Indication: SLEEP DISORDER
     Dosage: .25MG AS REQUIRED

REACTIONS (30)
  - ABNORMAL SENSATION IN EYE [None]
  - ANAEMIA [None]
  - ANGIODYSPLASIA [None]
  - BLOOD ERYTHROPOIETIN ABNORMAL [None]
  - BLOOD ERYTHROPOIETIN DECREASED [None]
  - BONE MARROW FAILURE [None]
  - CONJUNCTIVAL OEDEMA [None]
  - CONJUNCTIVITIS [None]
  - DRUG INTERACTION [None]
  - EMOTIONAL DISTRESS [None]
  - ENDOCRINE OPHTHALMOPATHY [None]
  - ERYTHROPOIESIS ABNORMAL [None]
  - EXOPHTHALMOS [None]
  - EYE IRRITATION [None]
  - EYE PAIN [None]
  - EYELID RETRACTION [None]
  - FAT TISSUE INCREASED [None]
  - FATIGUE [None]
  - FULGURATION [None]
  - GASTRIC POLYPS [None]
  - GASTRITIS [None]
  - GASTROOESOPHAGEAL REFLUX DISEASE [None]
  - LEUKOPENIA [None]
  - MARROW HYPERPLASIA [None]
  - MYELODYSPLASTIC SYNDROME [None]
  - NASAL SEPTUM PERFORATION [None]
  - NEUTROPENIA [None]
  - PANCYTOPENIA [None]
  - POLYP COLORECTAL [None]
  - THYROID DISORDER [None]
